FAERS Safety Report 15606553 (Version 1)
Quarter: 2018Q4

REPORT INFORMATION
  Report Type: Spontaneous
  Country: FR (occurrence: FR)
  Receive Date: 20181112
  Receipt Date: 20181112
  Transmission Date: 20190205
  Serious: Yes (Life-Threatening, Other)
  Sender: FDA-Public Use
  Company Number: FR-ACCORD-091619

PATIENT
  Age: 49 Year
  Sex: Male
  Weight: 83 kg

DRUGS (4)
  1. ENDOXAN [Suspect]
     Active Substance: CYCLOPHOSPHAMIDE
     Indication: BONE MARROW TRANSPLANT
     Route: 042
     Dates: start: 20171119, end: 20171120
  2. MESNA. [Suspect]
     Active Substance: MESNA
     Indication: PROPHYLAXIS
     Route: 042
     Dates: start: 20171119, end: 20171121
  3. CICLOSPORIN [Concomitant]
     Active Substance: CYCLOSPORINE
     Route: 048
     Dates: start: 20171127
  4. METHOTREXATE. [Suspect]
     Active Substance: METHOTREXATE
     Indication: PROPHYLAXIS AGAINST GRAFT VERSUS HOST DISEASE
     Route: 042
     Dates: start: 20171123, end: 20171128

REACTIONS (2)
  - Off label use [Unknown]
  - Venoocclusive liver disease [Recovered/Resolved]

NARRATIVE: CASE EVENT DATE: 20171215
